FAERS Safety Report 9803339 (Version 1)
Quarter: 2014Q1

REPORT INFORMATION
  Report Type: Spontaneous
  Country: US (occurrence: None)
  Receive Date: 20140102
  Receipt Date: 20140102
  Transmission Date: 20141002
  Serious: Yes (Hospitalization)
  Sender: FDA-Public Use
  Company Number: UTC-040585

PATIENT
  Age: 24 Year
  Sex: Female
  Weight: 47.72 kg

DRUGS (4)
  1. REMODULIN [Suspect]
     Indication: COR PULMONALE CHRONIC
     Dosage: 188.64 UG/KG (0.131 UG/KG, 1 IN 1 MIN), INTRAVENOUS
     Route: 042
     Dates: start: 20130303
  2. LETAIRIS [Suspect]
     Indication: PULMONARY HYPERTENSION
     Dates: start: 20070907
  3. LETAIRIS [Suspect]
     Indication: HEART DISEASE CONGENITAL
     Dates: start: 20070907
  4. CIALIS (TADALAFIL) [Concomitant]

REACTIONS (4)
  - Ligament rupture [None]
  - Malaise [None]
  - Dyspnoea [None]
  - Decreased activity [None]
